FAERS Safety Report 16357115 (Version 8)
Quarter: 2019Q3

REPORT INFORMATION
  Report Type: Spontaneous
  Country: US (occurrence: US)
  Receive Date: 20190527
  Receipt Date: 20190918
  Transmission Date: 20191004
  Serious: Yes (Hospitalization, Other)
  Sender: FDA-Public Use
  Company Number: US-SA-2019SA143374

PATIENT
  Age: 74 Year
  Sex: Female
  Weight: 88 kg

DRUGS (14)
  1. XARELTO [Concomitant]
     Active Substance: RIVAROXABAN
     Dosage: UNK
  2. PROBIOTIC [BIFIDOBACTERIUM LACTIS] [Concomitant]
     Active Substance: BIFIDOBACTERIUM ANIMALIS LACTIS
     Dosage: UNK
  3. FLUDROCORTISONE [Concomitant]
     Active Substance: FLUDROCORTISONE
     Dosage: UNK
  4. ASPIRIN [ACETYLSALICYLIC ACID] [Concomitant]
     Active Substance: ASPIRIN
     Dosage: UNK
  5. DOCUSATE [Concomitant]
     Active Substance: DOCUSATE
  6. ENOXAPARIN [Concomitant]
     Active Substance: ENOXAPARIN
     Dosage: UNK, UNK
  7. TAGAMET [Concomitant]
     Active Substance: CIMETIDINE
  8. DULCOLAX (BISACODYL) [Concomitant]
     Active Substance: BISACODYL
     Dosage: UNK
  9. TRAZODONE [Concomitant]
     Active Substance: TRAZODONE HYDROCHLORIDE
     Dosage: UNK
  10. HYDROCODONE/ACETAMINOPHEN [Concomitant]
     Active Substance: ACETAMINOPHEN\HYDROCODONE
  11. MAGNESIUM [Concomitant]
     Active Substance: MAGNESIUM
  12. ACETAMINOPHEN. [Concomitant]
     Active Substance: ACETAMINOPHEN
     Dosage: UNK
  13. MECLIZINE [Concomitant]
     Active Substance: MECLIZINE HYDROCHLORIDE
     Dosage: UNK
  14. PRALUENT [Suspect]
     Active Substance: ALIROCUMAB
     Dosage: UNK
     Dates: start: 201807

REACTIONS (9)
  - Hypertension [Recovered/Resolved]
  - Hypertensive encephalopathy [Recovered/Resolved]
  - Hypoaesthesia [Recovered/Resolved]
  - Aphasia [Recovered/Resolved]
  - Confusional state [Recovered/Resolved]
  - Speech disorder [Recovered/Resolved]
  - Agitation [Recovered/Resolved]
  - Language disorder [Recovered/Resolved]
  - Neurologic neglect syndrome [Recovered/Resolved]

NARRATIVE: CASE EVENT DATE: 20190511
